FAERS Safety Report 7860394-1 (Version None)
Quarter: 2011Q4

REPORT INFORMATION
  Report Type: 
  Country: None (occurrence: None)
  Receive Date: 20111027
  Receipt Date: 20111020
  Transmission Date: 20120403
  Serious: Yes (Hospitalization, Other)
  Sender: FDA-Public Use
  Company Number: PHHY2011CA18345

PATIENT
  Sex: Female

DRUGS (13)
  1. DESFERAL [Suspect]
     Route: 042
  2. METOPROLOL TARTRATE [Concomitant]
     Dosage: 12.5 MG, BID
     Route: 048
  3. LEVOTHYROXINE SODIUM [Concomitant]
     Dosage: 150 MG, QD
     Route: 048
  4. ACTONEL [Concomitant]
     Dosage: 35 MG, UNK
     Route: 048
  5. ATROVENT [Concomitant]
  6. EXJADE [Suspect]
     Dosage: 1650 MG, QD
     Route: 048
  7. EXJADE [Suspect]
     Indication: APLASTIC ANAEMIA
     Dosage: 1650 MG, QD
     Route: 048
     Dates: start: 20091001, end: 20110401
  8. PLATELETS [Concomitant]
  9. MAGNESIUM OXIDE [Concomitant]
  10. VITAMIN D [Concomitant]
  11. VENTOLIN [Concomitant]
  12. LEVOTHYROXINE SODIUM [Concomitant]
     Dosage: 0.15 MG, QD
     Route: 048
  13. CALCIUM CARBONATE [Concomitant]

REACTIONS (3)
  - DIARRHOEA [None]
  - VISUAL IMPAIRMENT [None]
  - SEPSIS [None]
